FAERS Safety Report 11487257 (Version 1)
Quarter: 2015Q3

REPORT INFORMATION
  Report Type: Spontaneous
  Country: US (occurrence: US)
  Receive Date: 20150910
  Receipt Date: 20150910
  Transmission Date: 20151125
  Serious: No
  Sender: FDA-Public Use
  Company Number: US-PFIZER INC-2015299684

PATIENT
  Age: 5 Year
  Sex: Female

DRUGS (1)
  1. GENOTROPIN MQ [Suspect]
     Active Substance: SOMATROPIN
     Indication: GONADAL DYSGENESIS
     Dosage: 0.8 MG, 1X/DAY
     Route: 058
     Dates: start: 20150220

REACTIONS (1)
  - Drug intolerance [Unknown]
